FAERS Safety Report 9074757 (Version 1)
Quarter: 2013Q1

REPORT INFORMATION
  Report Type: Report from Study
  Country: US (occurrence: US)
  Receive Date: 20130129
  Receipt Date: 20130129
  Transmission Date: 20140127
  Serious: No
  Sender: FDA-Public Use
  Company Number: US-ABBOTT-12P-163-0909870-00

PATIENT
  Age: 55 Year
  Sex: Female
  Weight: 65.83 kg

DRUGS (15)
  1. HUMIRA 40 MG/0.8 ML PEN [Suspect]
     Indication: CROHN^S DISEASE
     Dosage: LOADING DOSE
     Route: 058
     Dates: start: 20120210, end: 20120210
  2. HUMIRA 40 MG/0.8 ML PEN [Suspect]
     Dosage: LOADING DOSE
     Route: 058
     Dates: start: 20120224, end: 20120224
  3. HUMIRA 40 MG/0.8 ML PEN [Suspect]
  4. HYDROCHLOROTHIAZIDE [Concomitant]
     Indication: GENERALISED OEDEMA
  5. HYDROCHLOROTHIAZIDE [Concomitant]
  6. SPIRONOLACTONE [Concomitant]
     Indication: FLUID RETENTION
  7. SPIRONOLACTONE [Concomitant]
  8. CLONAZEPAM [Concomitant]
     Indication: ANXIETY
  9. IMITREX [Concomitant]
     Indication: MIGRAINE
  10. VICODIN [Concomitant]
     Indication: HEADACHE
     Dosage: 7.5/750 MG TWICE A DAY
  11. VICODIN [Concomitant]
     Indication: HEADACHE
  12. FISH OIL [Concomitant]
     Indication: PRODUCT USED FOR UNKNOWN INDICATION
  13. VITAMIN D [Concomitant]
     Indication: PRODUCT USED FOR UNKNOWN INDICATION
  14. VITAMIN B12 [Concomitant]
     Indication: PRODUCT USED FOR UNKNOWN INDICATION
  15. PHENERGAN [Concomitant]
     Indication: NAUSEA

REACTIONS (9)
  - Fatigue [Not Recovered/Not Resolved]
  - Myalgia [Not Recovered/Not Resolved]
  - Somnolence [Not Recovered/Not Resolved]
  - Musculoskeletal stiffness [Not Recovered/Not Resolved]
  - Insomnia [Not Recovered/Not Resolved]
  - Fatigue [Unknown]
  - Fatigue [Recovered/Resolved]
  - Migraine [Not Recovered/Not Resolved]
  - Mood swings [Not Recovered/Not Resolved]
